FAERS Safety Report 20938918 (Version 1)
Quarter: 2022Q2

REPORT INFORMATION
  Report Type: Spontaneous
  Country: US (occurrence: None)
  Receive Date: 20220608
  Receipt Date: 20220608
  Transmission Date: 20220721
  Serious: Yes (Hospitalization)
  Sender: FDA-Public Use
  Company Number: None

PATIENT
  Age: 48 Year
  Sex: Female

DRUGS (1)
  1. STELARA [Suspect]
     Active Substance: USTEKINUMAB
     Indication: Crohn^s disease
     Dosage: OTHER FREQUENCY : EVERY 60 DAYS;?
     Route: 058
     Dates: start: 20210522

REACTIONS (2)
  - Crohn^s disease [None]
  - White blood cell count increased [None]

NARRATIVE: CASE EVENT DATE: 20220608
